FAERS Safety Report 18758178 (Version 2)
Quarter: 2021Q1

REPORT INFORMATION
  Report Type: Report from Study
  Country: IT (occurrence: IT)
  Receive Date: 20210119
  Receipt Date: 20210205
  Transmission Date: 20210419
  Serious: No
  Sender: FDA-Public Use
  Company Number: IT-CELGENEUS-ITA-20210103791

PATIENT
  Age: 71 Year
  Sex: Male
  Weight: 56 kg

DRUGS (14)
  1. FEDRATINIB [Suspect]
     Active Substance: FEDRATINIB
     Indication: PRIMARY MYELOFIBROSIS
     Dosage: 400 MG X 1 X 1 DAYS
     Route: 048
     Dates: start: 20200521, end: 20200521
  2. LASIX [Concomitant]
     Active Substance: FUROSEMIDE
     Indication: LYMPHOEDEMA
     Dosage: 2 TABLET X INTERMITTENT
     Route: 048
     Dates: start: 20200617
  3. MINIAS [Concomitant]
     Active Substance: LORMETAZEPAM
     Indication: INSOMNIA
     Dosage: 1 TABLET X PRN
     Route: 048
     Dates: start: 202005, end: 202005
  4. TRIATEC [Concomitant]
     Indication: HYPERTENSION
     Dosage: 2.5 MG X 1 X 1 DAYS
     Route: 048
     Dates: start: 2008
  5. ATENOLOLO [Concomitant]
     Active Substance: ATENOLOL
     Indication: CARDIOVASCULAR EVENT PROPHYLAXIS
     Dosage: 50 MG X 1 X 1 DAYS
     Route: 048
     Dates: start: 2008
  6. IDROXYUREA [Concomitant]
     Indication: MYELOFIBROSIS
     Dosage: 500 MG
     Route: 065
     Dates: start: 201902, end: 201903
  7. KANRENOL [Concomitant]
     Active Substance: CANRENOATE POTASSIUM
     Indication: PROPHYLAXIS
     Dosage: 100 MG X 1 X 1 DAYS
     Route: 048
     Dates: start: 20200701
  8. OMEPRAZOLE. [Concomitant]
     Active Substance: OMEPRAZOLE
     Indication: ADVERSE EVENT
     Dosage: 20 MG X 2 X 1 DAYS
     Route: 048
     Dates: start: 20200617
  9. EXJADE [Concomitant]
     Active Substance: DEFERASIROX
     Indication: UNEVALUABLE EVENT
     Dosage: 360 MG X 2 X 1 DAYS
     Route: 048
     Dates: start: 2017
  10. LASIX [Concomitant]
     Active Substance: FUROSEMIDE
     Indication: LYMPHOEDEMA
     Dosage: 25 MG X 1 X 1 DAYS
     Route: 048
     Dates: start: 2019, end: 20200616
  11. METFORMINA [Concomitant]
     Active Substance: METFORMIN HYDROCHLORIDE
     Indication: DIABETES MELLITUS
     Dosage: 850 MG X 2 X 1 DAYS
     Route: 048
     Dates: start: 2004
  12. OMEPRAZOLE. [Concomitant]
     Active Substance: OMEPRAZOLE
     Indication: UNEVALUABLE EVENT
     Dosage: 20 MG X 1 X 1 DAYS
     Route: 048
     Dates: start: 2004, end: 20200616
  13. ASPIRIN. [Concomitant]
     Active Substance: ASPIRIN
     Indication: CARDIOVASCULAR EVENT PROPHYLAXIS
     Dosage: 100 MG X 1 X 1 DAYS
     Route: 048
     Dates: start: 2008, end: 20200521
  14. ADENURIC [Concomitant]
     Active Substance: FEBUXOSTAT
     Indication: PROPHYLAXIS
     Dosage: 80 MG X 1 X 1 DAYS
     Route: 048
     Dates: start: 20200701

REACTIONS (1)
  - Vitamin B1 deficiency [Not Recovered/Not Resolved]

NARRATIVE: CASE EVENT DATE: 20201103
